FAERS Safety Report 6572035-4 (Version None)
Quarter: 2010Q1

REPORT INFORMATION
  Report Type: 
  Country: None (occurrence: None)
  Receive Date: 20100205
  Receipt Date: 20100127
  Transmission Date: 20100710
  Serious: No
  Sender: FDA-Public Use
  Company Number: US-B.I. PHARMACEUTICALS,INC./RIDGEFIELD-2010-BP-01099BP

PATIENT
  Sex: Female

DRUGS (3)
  1. ZANTAC 75 [Suspect]
     Indication: GASTROOESOPHAGEAL REFLUX DISEASE
     Dosage: 150 MG
     Route: 048
     Dates: start: 20100125, end: 20100125
  2. ZANTAC 75 [Suspect]
     Indication: BARRETT'S OESOPHAGUS
     Dosage: 300 MG
     Route: 048
     Dates: start: 20100126, end: 20100126
  3. ZANTAC 75 [Suspect]
     Dosage: 150 MG
     Route: 048
     Dates: start: 20100127

REACTIONS (2)
  - DIARRHOEA [None]
  - NERVOUSNESS [None]
